FAERS Safety Report 10985014 (Version 1)
Quarter: 2015Q2

REPORT INFORMATION
  Report Type: Spontaneous
  Country: CA (occurrence: CA)
  Receive Date: 20150403
  Receipt Date: 20150403
  Transmission Date: 20150821
  Serious: Yes (Other)
  Sender: FDA-Public Use
  Company Number: US-ASTRAZENECA-2015SE30484

PATIENT
  Age: 1276 Day
  Sex: Male
  Weight: 15 kg

DRUGS (1)
  1. SYNAGIS [Suspect]
     Active Substance: PALIVIZUMAB
     Indication: PRODUCT USED FOR UNKNOWN INDICATION
     Dosage: 2.25MG, 2 INJECTIONS ON 19-DEC-2015, 1 INJECTION ON 16-JAN-2015
     Route: 030
     Dates: start: 20141219, end: 20150116

REACTIONS (2)
  - Injection site pain [Recovered/Resolved]
  - Epilepsy [Recovered/Resolved]

NARRATIVE: CASE EVENT DATE: 20141219
